FAERS Safety Report 5009384-7 (Version None)
Quarter: 2006Q2

REPORT INFORMATION
  Report Type: 
  Country: None (occurrence: None)
  Receive Date: 20060524
  Receipt Date: 20060519
  Transmission Date: 20061013
  Serious: Yes (Other)
  Sender: FDA-Public Use
  Company Number: US-JNJFOC-20060504887

PATIENT
  Sex: Female
  Weight: 53.52 kg

DRUGS (3)
  1. ORTHO EVRA [Suspect]
     Indication: CONTRACEPTION
     Route: 062
  2. ANTIBIOTIC [Suspect]
     Indication: TOOTH ABSCESS
  3. DIFLUCAN [Suspect]

REACTIONS (5)
  - DRUG EXPOSURE DURING PREGNANCY [None]
  - FUNGAL INFECTION [None]
  - SUPRAVENTRICULAR TACHYCARDIA [None]
  - TOOTH ABSCESS [None]
  - UNINTENDED PREGNANCY [None]
